FAERS Safety Report 6393323-0 (Version None)
Quarter: 2009Q4

REPORT INFORMATION
  Report Type: 
  Country: None (occurrence: None)
  Receive Date: 20091008
  Receipt Date: 20090930
  Transmission Date: 20100525
  Serious: Yes (Other)
  Sender: FDA-Public Use
  Company Number: PHHY2009BR41994

PATIENT
  Age: 54 Year
  Sex: Male

DRUGS (1)
  1. RASILEZ [Suspect]
     Dosage: 1 TABLET DAILY
     Dates: start: 20090927

REACTIONS (1)
  - ARRHYTHMIA [None]
